FAERS Safety Report 5338484-7 (Version None)
Quarter: 2007Q2

REPORT INFORMATION
  Report Type: 
  Country: None (occurrence: None)
  Receive Date: 20070530
  Receipt Date: 20070530
  Transmission Date: 20071010
  Serious: Yes (Other)
  Sender: FDA-Public Use
  Company Number: None

PATIENT
  Age: 70 Year
  Sex: Female
  Weight: 68.0396 kg

DRUGS (7)
  1. TEMOVATE [Suspect]
     Indication: PSORIASIS
     Dosage: DEPENDING ON AREA 3X TIMES A DAY TOPICAL
     Route: 061
     Dates: start: 20070125
  2. GLUCOPHAGE [Concomitant]
  3. DOXEPHIN [Concomitant]
  4. VICOTIN [Concomitant]
  5. ERYTHROTEC [Concomitant]
  6. AVAPRO [Concomitant]
  7. VYTORIN [Concomitant]

REACTIONS (1)
  - DRUG INEFFECTIVE [None]
